FAERS Safety Report 13065119 (Version 1)
Quarter: 2016Q4

REPORT INFORMATION
  Report Type: Spontaneous
  Country: US (occurrence: US)
  Receive Date: 20161227
  Receipt Date: 20161227
  Transmission Date: 20170207
  Serious: Yes (Other)
  Sender: FDA-Public Use
  Company Number: US-JNJFOC-20161221808

PATIENT
  Age: 70 Year

DRUGS (3)
  1. CELLCEPT [Concomitant]
     Active Substance: MYCOPHENOLATE MOFETIL\MYCOPHENOLATE MOFETIL HYDROCHLORIDE
     Indication: NEUROSARCOIDOSIS
     Route: 065
  2. OPIAT [Concomitant]
     Active Substance: UNSPECIFIED INGREDIENT
     Route: 065
  3. REMICADE [Suspect]
     Active Substance: INFLIXIMAB
     Indication: NEUROSARCOIDOSIS
     Route: 042

REACTIONS (11)
  - Product use issue [Unknown]
  - Fatigue [Unknown]
  - Pyuria [Unknown]
  - Bursitis [Unknown]
  - Joint effusion [Unknown]
  - Off label use [Unknown]
  - Neurosarcoidosis [Unknown]
  - Wrist fracture [Unknown]
  - Restless legs syndrome [Unknown]
  - Haematuria [Unknown]
  - Osteoarthritis [Unknown]

NARRATIVE: CASE EVENT DATE: 20151105
